FAERS Safety Report 19995094 (Version 1)
Quarter: 2021Q4

REPORT INFORMATION
  Report Type: Spontaneous
  Country: BR (occurrence: BR)
  Receive Date: 20211026
  Receipt Date: 20211026
  Transmission Date: 20220303
  Serious: Yes (Other)
  Sender: FDA-Public Use
  Company Number: BR-GLAXOSMITHKLINE-BR2021AMR217781

PATIENT
  Sex: Female

DRUGS (1)
  1. TRELEGY ELLIPTA [Suspect]
     Active Substance: FLUTICASONE FUROATE\UMECLIDINIUM BROMIDE\VILANTEROL TRIFENATATE
     Indication: Product used for unknown indication
     Dosage: 100/62,5/25MCG X 30 DOSES.

REACTIONS (5)
  - Respiratory failure [Unknown]
  - Spirometry abnormal [Recovered/Resolved]
  - Skin reaction [Unknown]
  - Drug hypersensitivity [Unknown]
  - Drug ineffective [Unknown]
